FAERS Safety Report 17414446 (Version 4)
Quarter: 2020Q2

REPORT INFORMATION
  Report Type: Spontaneous
  Country: US (occurrence: US)
  Receive Date: 20200213
  Receipt Date: 20200611
  Transmission Date: 20200713
  Serious: Yes (Other)
  Sender: FDA-Public Use
  Company Number: US-PFIZER INC-2020062347

PATIENT
  Age: 83 Year
  Sex: Male
  Weight: 71 kg

DRUGS (10)
  1. BRAFTOVI [Suspect]
     Active Substance: ENCORAFENIB
     Dosage: 3 DF, DAILY
     Route: 048
     Dates: start: 2019, end: 20200204
  2. MEKTOVI [Suspect]
     Active Substance: BINIMETINIB
     Indication: METASTATIC MALIGNANT MELANOMA
     Dosage: UNK
     Route: 048
     Dates: start: 20190301, end: 201903
  3. MEKTOVI [Suspect]
     Active Substance: BINIMETINIB
     Dosage: 3 DF, DAILY(1 TAB IN THE AM AND 2 TABS IN THE PM)
     Route: 048
     Dates: start: 2019, end: 20200204
  4. MEKTOVI [Suspect]
     Active Substance: BINIMETINIB
     Dosage: UNK
     Route: 048
     Dates: start: 20200207, end: 202002
  5. SIMVASTATIN. [Concomitant]
     Active Substance: SIMVASTATIN
     Indication: BLOOD CHOLESTEROL ABNORMAL
     Dosage: UNK
     Dates: start: 20090928
  6. BRAFTOVI [Suspect]
     Active Substance: ENCORAFENIB
     Dosage: UNK
     Route: 048
     Dates: start: 20200207, end: 202002
  7. MEKTOVI [Suspect]
     Active Substance: BINIMETINIB
     Dosage: 1 DF, 2X/DAY
     Route: 048
     Dates: start: 20200217
  8. BRAFTOVI [Suspect]
     Active Substance: ENCORAFENIB
     Dosage: 1 DF, 2X/DAY
     Route: 048
     Dates: start: 20200217
  9. FERROUS SULFATE. [Concomitant]
     Active Substance: FERROUS SULFATE
     Indication: IRON DEFICIENCY
     Dosage: UNK
  10. BRAFTOVI [Suspect]
     Active Substance: ENCORAFENIB
     Indication: METASTATIC MALIGNANT MELANOMA
     Dosage: UNK
     Route: 048
     Dates: start: 20190301, end: 201903

REACTIONS (4)
  - Urinary tract infection [Recovering/Resolving]
  - Haematuria [Recovered/Resolved]
  - Calculus urinary [Unknown]
  - Transaminases increased [Unknown]

NARRATIVE: CASE EVENT DATE: 20200203
